FAERS Safety Report 15067767 (Version 1)
Quarter: 2018Q2

REPORT INFORMATION
  Report Type: Spontaneous
  Country: US (occurrence: US)
  Receive Date: 20180626
  Receipt Date: 20180626
  Transmission Date: 20180711
  Serious: No
  Sender: FDA-Public Use
  Company Number: US-ASTRAZENECA-2018SE72721

PATIENT
  Age: 24555 Day
  Sex: Male
  Weight: 89.8 kg

DRUGS (4)
  1. LAMICTAL [Concomitant]
     Active Substance: LAMOTRIGINE
     Indication: SEIZURE
  2. BRILINTA [Suspect]
     Active Substance: TICAGRELOR
     Indication: STENT PLACEMENT
     Route: 048
     Dates: start: 20180423
  3. ASPIRIN. [Concomitant]
     Active Substance: ASPIRIN
     Dosage: TWO TIMES A DAY
  4. BRILINTA [Suspect]
     Active Substance: TICAGRELOR
     Indication: MYOCARDIAL INFARCTION
     Route: 048
     Dates: start: 20180423

REACTIONS (3)
  - Drug dose omission [Not Recovered/Not Resolved]
  - Off label use [Unknown]
  - Epistaxis [Unknown]

NARRATIVE: CASE EVENT DATE: 20180525
